FAERS Safety Report 8036609-6 (Version None)
Quarter: 2012Q1

REPORT INFORMATION
  Report Type: 
  Country: None (occurrence: None)
  Receive Date: 20120111
  Receipt Date: 20120104
  Transmission Date: 20120608
  Serious: Yes (Death, Life-Threatening)
  Sender: FDA-Public Use
  Company Number: TW-CELGENEUS-153-50794-12010348

PATIENT
  Sex: Male
  Weight: 57 kg

DRUGS (2)
  1. VIDAZA [Suspect]
     Indication: CHRONIC MYELOMONOCYTIC LEUKAEMIA
     Dosage: 100 MILLIGRAM
     Route: 041
     Dates: start: 20111229, end: 20120102
  2. ENTECAVIR [Concomitant]
     Indication: ANTIVIRAL PROPHYLAXIS
     Route: 065

REACTIONS (2)
  - DEATH [None]
  - JAUNDICE CHOLESTATIC [None]
